FAERS Safety Report 4934771-2 (Version None)
Quarter: 2006Q1

REPORT INFORMATION
  Report Type: 
  Country: None (occurrence: None)
  Receive Date: 20060307
  Receipt Date: 20050310
  Transmission Date: 20060701
  Serious: Yes (Hospitalization)
  Sender: FDA-Public Use
  Company Number: US-MERCK-0503USA02059

PATIENT
  Age: 63 Year
  Sex: Female

DRUGS (1)
  1. VIOXX [Suspect]
     Indication: ARTHRITIS
     Route: 048
     Dates: start: 19991101, end: 20040930

REACTIONS (20)
  - ABDOMINAL HERNIA [None]
  - ABDOMINAL PAIN [None]
  - AORTIC VALVE INCOMPETENCE [None]
  - AORTIC VALVE STENOSIS [None]
  - CORONARY ARTERY DISEASE [None]
  - GASTRIC ULCER [None]
  - GASTROINTESTINAL HAEMORRHAGE [None]
  - HIATUS HERNIA [None]
  - IRON DEFICIENCY ANAEMIA [None]
  - LYME DISEASE [None]
  - MITRAL VALVE STENOSIS [None]
  - MONARTHRITIS [None]
  - NAUSEA [None]
  - ORTHOSTATIC INTOLERANCE [None]
  - PULMONARY HYPERTENSION [None]
  - SUBCLAVIAN ARTERY THROMBOSIS [None]
  - TRANSIENT ISCHAEMIC ATTACK [None]
  - VENTRICULAR HYPERTROPHY [None]
  - VERTIGO [None]
  - VOMITING [None]
